FAERS Safety Report 24757746 (Version 2)
Quarter: 2025Q1

REPORT INFORMATION
  Report Type: Spontaneous
  Country: CA (occurrence: CA)
  Receive Date: 20241220
  Receipt Date: 20250206
  Transmission Date: 20250409
  Serious: Yes (Other)
  Sender: Unknown Manufacturer
  Company Number: CA-862174955-ML2024-06630

PATIENT
  Age: 79 Year
  Sex: Male

DRUGS (4)
  1. RANOLAZINE [Suspect]
     Active Substance: RANOLAZINE
     Indication: Angina pectoris
     Dosage: DOSE: 500 MG - 1 TABLET BY MOUTH TWICE DAILY
     Route: 048
     Dates: start: 20240901, end: 20241201
  2. ASPIRIN [Concomitant]
     Active Substance: ASPIRIN
     Indication: Prophylaxis
     Route: 048
  3. CRESTOR [Concomitant]
     Active Substance: ROSUVASTATIN CALCIUM
     Indication: Product used for unknown indication
     Route: 048
  4. LASIX [Concomitant]
     Active Substance: FUROSEMIDE
     Indication: Oedema
     Route: 048

REACTIONS (5)
  - Kidney infection [Unknown]
  - Acute kidney injury [Recovered/Resolved]
  - Chills [Unknown]
  - Fatigue [Unknown]
  - Dyspepsia [Unknown]

NARRATIVE: CASE EVENT DATE: 20240101
